FAERS Safety Report 21961039 (Version 2)
Quarter: 2025Q2

REPORT INFORMATION
  Report Type: Report from Study
  Country: CA (occurrence: CA)
  Receive Date: 20230207
  Receipt Date: 20250423
  Transmission Date: 20250717
  Serious: Yes (Other)
  Sender: TAKEDA
  Company Number: CA-TAKEDA-2023TUS011704

PATIENT
  Sex: Female

DRUGS (21)
  1. HUMAN IMMUNOGLOBULIN G [Suspect]
     Active Substance: HUMAN IMMUNOGLOBULIN G
     Indication: Secondary immunodeficiency
     Dosage: 200 MILLIGRAM, 1/WEEK
     Dates: start: 20180925
  2. HUMAN IMMUNOGLOBULIN G [Suspect]
     Active Substance: HUMAN IMMUNOGLOBULIN G
     Dosage: 200 MILLIGRAM, 1/WEEK
  3. BECLOMETHASONE DIPROPIONATE [Concomitant]
     Active Substance: BECLOMETHASONE DIPROPIONATE
  4. BUPROPION [Concomitant]
     Active Substance: BUPROPION
     Dosage: 300 MILLIGRAM, QD
  5. CALCIUM [Concomitant]
     Active Substance: CALCIUM
     Dosage: UNK UNK, QD
  6. VITAMIN D3 [Concomitant]
     Active Substance: CHOLECALCIFEROL
     Dosage: UNK UNK, QD
  7. VITAMIN B12 [Concomitant]
     Active Substance: CYANOCOBALAMIN
     Dosage: 1200 MICROGRAM, QD
  8. ESCITALOPRAM [Concomitant]
     Active Substance: ESCITALOPRAM OXALATE
     Dosage: 20 MILLIGRAM, QD
  9. FERROUS SULFATE [Concomitant]
     Active Substance: FERROUS SULFATE
     Dosage: UNK UNK, QD
  10. HYDROXYCHLOROQUINE [Concomitant]
     Active Substance: HYDROXYCHLOROQUINE
     Dosage: 400 MILLIGRAM, QD
  11. Immunoglobulin [Concomitant]
     Dosage: 200 MILLIGRAM, 1/WEEK
  12. MAGNESIUM [Concomitant]
     Active Substance: MAGNESIUM
     Dosage: UNK UNK, QD
  13. MOMETASONE [Concomitant]
     Active Substance: MOMETASONE
     Route: 061
  14. OBETICHOLIC ACID [Concomitant]
     Active Substance: OBETICHOLIC ACID
     Dosage: 5 MILLIGRAM, QD
  15. RABEPRAZOLE [Concomitant]
     Active Substance: RABEPRAZOLE
     Dosage: 20 MILLIGRAM, QD
  16. RITUXIMAB [Concomitant]
     Active Substance: RITUXIMAB
  17. URSODIOL [Concomitant]
     Active Substance: URSODIOL
     Dosage: 750 MILLIGRAM, BID
  18. VALACYCLOVIR [Concomitant]
     Active Substance: VALACYCLOVIR HYDROCHLORIDE
     Dosage: 1000 MILLIGRAM, QD
  19. ACETAMINOPHEN [Concomitant]
     Active Substance: ACETAMINOPHEN
  20. CODEINE [Concomitant]
     Active Substance: CODEINE
  21. CAFFEINE [Concomitant]
     Active Substance: CAFFEINE

REACTIONS (2)
  - Pneumonia [Unknown]
  - Bacterial infection [Recovered/Resolved]
